FAERS Safety Report 4768779-7 (Version None)
Quarter: 2005Q3

REPORT INFORMATION
  Report Type: 
  Country: None (occurrence: None)
  Receive Date: 20050913
  Receipt Date: 20050901
  Transmission Date: 20060218
  Serious: Yes (Hospitalization, Disabling, Other)
  Sender: FDA-Public Use
  Company Number: 2005123250

PATIENT
  Age: 16 Year
  Sex: Female
  Weight: 45.3597 kg

DRUGS (3)
  1. ZITHROMAX [Suspect]
     Indication: SINUSITIS
     Dosage: 2 TABLETS, ORAL
     Route: 048
     Dates: start: 20050818, end: 20050818
  2. CORTICOSTROIDS (COSTICOSTEROIDS) [Suspect]
     Indication: DYSPNOEA
     Dosage: INHALATION
     Route: 055
     Dates: start: 20050818
  3. CONTRACEPTIVE, UNSPECIFIED (CONTRACEPTIVE, UNSPECIFIED) [Concomitant]

REACTIONS (4)
  - ABASIA [None]
  - DECREASED ACTIVITY [None]
  - DYSPNOEA [None]
  - WHITE BLOOD CELL COUNT INCREASED [None]
